FAERS Safety Report 20917403 (Version 2)
Quarter: 2022Q3

REPORT INFORMATION
  Report Type: Report from Study
  Country: US (occurrence: US)
  Receive Date: 20220606
  Receipt Date: 20220727
  Transmission Date: 20221026
  Serious: Yes (Hospitalization)
  Sender: FDA-Public Use
  Company Number: US-ARGENX-2022-ARGX-US000871

PATIENT

DRUGS (1)
  1. VYVGART [Suspect]
     Active Substance: EFGARTIGIMOD ALFA-FCAB
     Indication: Myasthenia gravis
     Dosage: 10 MG/KG
     Dates: start: 20220518

REACTIONS (6)
  - Thrombosis [Unknown]
  - Fatigue [Unknown]
  - Clostridium difficile infection [Unknown]
  - Sepsis [Unknown]
  - Sputum increased [Unknown]
  - Dyspnoea [Unknown]
